FAERS Safety Report 4998357-6 (Version None)
Quarter: 2006Q2

REPORT INFORMATION
  Report Type: 
  Country: None (occurrence: None)
  Receive Date: 20060510
  Receipt Date: 20060428
  Transmission Date: 20061013
  Serious: Yes (Hospitalization)
  Sender: FDA-Public Use
  Company Number: PHBS2006NO06351

PATIENT

DRUGS (1)
  1. SANDIMMUNE [Suspect]
     Dosage: UNK, UNK
     Route: 042
     Dates: start: 20060428, end: 20060428

REACTIONS (2)
  - HEART RATE INCREASED [None]
  - INCORRECT ROUTE OF DRUG ADMINISTRATION [None]
